FAERS Safety Report 4610721-3 (Version None)
Quarter: 2005Q2

REPORT INFORMATION
  Report Type: 
  Country: None (occurrence: None)
  Receive Date: 20050228
  Receipt Date: 20041230
  Transmission Date: 20051028
  Serious: No
  Sender: FDA-Public Use
  Company Number: 211420

PATIENT
  Age: 6 Year
  Sex: Female
  Weight: 12.3 kg

DRUGS (2)
  1. NUTROPIN AQ [Suspect]
     Indication: PRADER-WILLI SYNDROME
     Dosage: 0.9 MG, QD; SUBCUTANEOUS (SEE IMAGE)
     Route: 058
     Dates: start: 20000911, end: 20041102
  2. NUTROPIN AQ [Suspect]
     Indication: PRADER-WILLI SYNDROME
     Dosage: 0.9 MG, QD; SUBCUTANEOUS (SEE IMAGE)
     Route: 058
     Dates: start: 20041103

REACTIONS (1)
  - SCOLIOSIS [None]
